FAERS Safety Report 8306015-5 (Version None)
Quarter: 2012Q2

REPORT INFORMATION
  Report Type: 
  Country: None (occurrence: None)
  Receive Date: 20120423
  Receipt Date: 20120413
  Transmission Date: 20120825
  Serious: Yes (Other)
  Sender: FDA-Public Use
  Company Number: JP-VERTEX PHARMACEUTICALS INC.-AE-2012-005589

PATIENT
  Age: 54 Year
  Sex: Female

DRUGS (11)
  1. HIRUSUKAMIN [Concomitant]
     Route: 048
  2. TALION [Concomitant]
     Route: 048
  3. ENALAPRIL MALEATE [Concomitant]
     Route: 048
  4. REBETOL [Concomitant]
     Route: 048
     Dates: start: 20120323, end: 20120405
  5. PEGINTERFERON ALFA-2B [Concomitant]
     Indication: HEPATITIS C
     Route: 051
     Dates: start: 20120224, end: 20120405
  6. ZOLPIDEM [Concomitant]
     Route: 048
  7. FERRUM [Concomitant]
     Route: 048
  8. TELAVIC (TELAPREVIR) [Suspect]
     Indication: HEPATITIS C
     Route: 048
     Dates: start: 20120224, end: 20120405
  9. AMLODIPINE [Concomitant]
     Route: 048
  10. HICEE [Concomitant]
     Route: 048
  11. REBETOL [Concomitant]
     Indication: HEPATITIS C
     Route: 048
     Dates: start: 20120224, end: 20120322

REACTIONS (2)
  - INFECTIOUS PERITONITIS [None]
  - GASTRIC ULCER [None]
